FAERS Safety Report 16912629 (Version 1)
Quarter: 2019Q4

REPORT INFORMATION
  Report Type: Spontaneous
  Country: FR (occurrence: FR)
  Receive Date: 20191014
  Receipt Date: 20191014
  Transmission Date: 20200122
  Serious: Yes (Hospitalization)
  Sender: FDA-Public Use
  Company Number: FR-TEVA-2019-FR-1120071

PATIENT
  Age: 69 Year
  Sex: Male
  Weight: 137.2 kg

DRUGS (11)
  1. LINEZOLIDE [Suspect]
     Active Substance: LINEZOLID
     Indication: BACTERAEMIA
     Dosage: UNKNOWN
     Route: 041
     Dates: start: 20190710, end: 20190717
  2. RIVAROXABAN [Concomitant]
     Active Substance: RIVAROXABAN
  3. DIFFU K [Concomitant]
     Active Substance: POTASSIUM CHLORIDE
  4. FUROSEMIDE. [Concomitant]
     Active Substance: FUROSEMIDE
  5. FUMARATE DE METOPROLOL [Concomitant]
  6. IRBESARTAN. [Concomitant]
     Active Substance: IRBESARTAN
  7. GALVUS 50 MG, COMPRIME [Concomitant]
     Active Substance: VILDAGLIPTIN
  8. JANUMET [Concomitant]
     Active Substance: METFORMIN HYDROCHLORIDE\SITAGLIPTIN PHOSPHATE
  9. VANCOMYCIN [Suspect]
     Active Substance: VANCOMYCIN
     Indication: BACTERAEMIA
     Dosage: UNKNOWN, 1850 MG
     Route: 041
     Dates: start: 20190715, end: 20190721
  10. TAMSULOSINE [Concomitant]
     Active Substance: TAMSULOSIN HYDROCHLORIDE
  11. CHLORHYDRATE D HYDROXYZINE [Concomitant]
     Active Substance: HYDROXYZINE HYDROCHLORIDE

REACTIONS (2)
  - Urticaria [Recovering/Resolving]
  - Rash maculo-papular [Recovering/Resolving]

NARRATIVE: CASE EVENT DATE: 20190721
